FAERS Safety Report 7683546-2 (Version None)
Quarter: 2011Q3

REPORT INFORMATION
  Report Type: 
  Country: None (occurrence: None)
  Receive Date: 20110815
  Receipt Date: 20110801
  Transmission Date: 20111222
  Serious: Yes (Other)
  Sender: FDA-Public Use
  Company Number: BR-TYCO HEALTHCARE/MALLINCKRODT-T201101549

PATIENT
  Age: 53 Year
  Sex: Female

DRUGS (2)
  1. EXALGO [Suspect]
     Indication: ANALGESIC THERAPY
     Dosage: 8 MG, QD
     Route: 048
     Dates: start: 20110701
  2. SIBUTRAMINE HYDROCHLORIDE MONOHYDRATE [Suspect]
     Indication: WEIGHT DECREASED

REACTIONS (1)
  - HYPERSENSITIVITY [None]
